FAERS Safety Report 6859037-5 (Version None)
Quarter: 2010Q3

REPORT INFORMATION
  Report Type: 
  Country: None (occurrence: None)
  Receive Date: 20100719
  Receipt Date: 20080221
  Transmission Date: 20110219
  Serious: No
  Sender: FDA-Public Use
  Company Number: US-PFIZER INC-2008017464

PATIENT
  Sex: Female
  Weight: 95.454 kg

DRUGS (6)
  1. CHANTIX [Suspect]
     Indication: SMOKING CESSATION THERAPY
     Dates: start: 20080103
  2. TEGRETOL [Concomitant]
     Indication: BRAIN INJURY
  3. CLONIDINE [Concomitant]
     Indication: CONVULSION
  4. ZOCOR [Concomitant]
     Indication: HOT FLUSH
  5. ZOLOFT [Concomitant]
     Indication: DEPRESSION
  6. ZANTAC [Concomitant]
     Indication: DYSPEPSIA

REACTIONS (1)
  - VOMITING [None]
